FAERS Safety Report 4895478-3 (Version None)
Quarter: 2006Q1

REPORT INFORMATION
  Report Type: 
  Country: None (occurrence: None)
  Receive Date: 20060130
  Receipt Date: 20051109
  Transmission Date: 20060701
  Serious: Yes (Hospitalization)
  Sender: FDA-Public Use
  Company Number: JP-BOEHRINGER INGELHEIM PHARMACEUTICALS, INC.-2005-BP-19747NB

PATIENT
  Sex: Male

DRUGS (8)
  1. SPIRIVA [Suspect]
     Indication: ADVERSE EVENT
     Route: 055
     Dates: start: 20050701, end: 20050901
  2. MICARDIS [Concomitant]
     Indication: HYPERTENSION
     Route: 048
  3. ASPIRIN [Concomitant]
     Indication: ATRIAL FIBRILLATION
     Route: 048
  4. DIGOXIN [Concomitant]
     Indication: ATRIAL FIBRILLATION
     Route: 048
  5. ALDACTONE [Concomitant]
     Indication: CARDIAC FAILURE
     Route: 048
  6. LASIX [Concomitant]
     Indication: CARDIAC FAILURE
     Route: 048
  7. ROCORNAL [Concomitant]
     Indication: ANGINA PECTORIS
     Route: 048
  8. MILLIS (NITROGLYCERIN) [Concomitant]
     Indication: ANGINA PECTORIS
     Route: 062

REACTIONS (2)
  - CARDIAC FAILURE [None]
  - CARDIOMEGALY [None]
